FAERS Safety Report 12945609 (Version 1)
Quarter: 2016Q4

REPORT INFORMATION
  Report Type: Spontaneous
  Country: JP (occurrence: JP)
  Receive Date: 20161115
  Receipt Date: 20161115
  Transmission Date: 20170207
  Serious: Yes (Death)
  Sender: FDA-Public Use
  Company Number: JP-SA-2016SA199323

PATIENT

DRUGS (1)
  1. LYXUMIA [Suspect]
     Active Substance: LIXISENATIDE
     Indication: DIABETES MELLITUS
     Route: 058

REACTIONS (1)
  - Neoplasm malignant [Fatal]
